FAERS Safety Report 5962471-9 (Version None)
Quarter: 2008Q4

REPORT INFORMATION
  Report Type: 
  Country: None (occurrence: None)
  Receive Date: 20081121
  Receipt Date: 20081110
  Transmission Date: 20090506
  Serious: Yes (Disabling)
  Sender: FDA-Public Use
  Company Number: IE-PFIZER INC-2008070499

PATIENT
  Age: 50 Year
  Sex: Female
  Weight: 165 kg

DRUGS (6)
  1. LYRICA [Suspect]
     Indication: GENERALISED ANXIETY DISORDER
     Dosage: DAILY DOSE:150MG
     Route: 048
     Dates: start: 20080811, end: 20080901
  2. LYRICA [Suspect]
     Indication: DEPRESSION
  3. ELTROXIN [Concomitant]
     Indication: HYPOTHYROIDISM
     Dosage: DAILY DOSE:50MG
     Route: 048
  4. PRIADEL [Concomitant]
     Indication: BIPOLAR DISORDER
     Dosage: DAILY DOSE:100MG
     Route: 048
     Dates: start: 20010101
  5. PROZAC [Concomitant]
     Indication: DEPRESSION
     Dosage: DAILY DOSE:20MG
     Route: 048
     Dates: start: 20070101
  6. DOMPERIDONE [Concomitant]
     Indication: NAUSEA
     Route: 048

REACTIONS (6)
  - CONFUSIONAL STATE [None]
  - DISORIENTATION [None]
  - DISSOCIATION [None]
  - DISTURBANCE IN ATTENTION [None]
  - DIZZINESS [None]
  - SOMNOLENCE [None]
